FAERS Safety Report 10020758 (Version 1)
Quarter: 2013Q4

REPORT INFORMATION
  Report Type: Spontaneous
  Country: US (occurrence: None)
  Receive Date: 20131129
  Receipt Date: 20131129
  Transmission Date: 20140711
  Serious: Yes (Other)
  Sender: FDA-Public Use
  Company Number: ADR-2013-01770

PATIENT
  Sex: Female

DRUGS (8)
  1. BACLOFEN [Suspect]
     Indication: PAIN
     Dosage: 85.62
  2. FENTANYL [Suspect]
     Dosage: 1198.7
  3. CLONIDINE [Suspect]
     Dosage: 102.74
  4. BUPIVACAINE [Suspect]
     Dosage: 10.274
  5. ATTIQ [Concomitant]
  6. CYMBALTA [Concomitant]
  7. XANAX [Concomitant]
  8. NEXIUM [Concomitant]

REACTIONS (14)
  - Pyrexia [None]
  - Influenza like illness [None]
  - Convulsion [None]
  - Cerebrovascular accident [None]
  - Device dislocation [None]
  - Implant site mass [None]
  - Headache [None]
  - Tremor [None]
  - Feeling of body temperature change [None]
  - Chills [None]
  - Bedridden [None]
  - Wheelchair user [None]
  - Urinary tract infection [None]
  - Ear infection [None]
